FAERS Safety Report 12952258 (Version 1)
Quarter: 2016Q4

REPORT INFORMATION
  Report Type: Spontaneous
  Country: US (occurrence: US)
  Receive Date: 20161117
  Receipt Date: 20161117
  Transmission Date: 20170207
  Serious: No
  Sender: FDA-Public Use
  Company Number: US-BAXALTA-2016BLT007981

PATIENT
  Age: 66 Year
  Sex: Female

DRUGS (1)
  1. GAMMAGARD LIQUID [Suspect]
     Active Substance: HUMAN IMMUNOGLOBULIN G
     Indication: IMMUNODEFICIENCY COMMON VARIABLE
     Dosage: 25 G, EVERY 4 WK
     Route: 042
     Dates: start: 2010

REACTIONS (1)
  - Hepatitis B antibody abnormal [Unknown]

NARRATIVE: CASE EVENT DATE: 20160818
